FAERS Safety Report 24575735 (Version 1)
Quarter: 2024Q4

REPORT INFORMATION
  Report Type: Report from Study
  Country: US (occurrence: US)
  Receive Date: 20241104
  Receipt Date: 20241104
  Transmission Date: 20250115
  Serious: Yes (Other)
  Sender: UCB
  Company Number: US-UCBSA-2024056089

PATIENT
  Age: 26 Year
  Sex: Female

DRUGS (3)
  1. FINTEPLA [Suspect]
     Active Substance: FENFLURAMINE
     Indication: Lennox-Gastaut syndrome
     Dosage: 2.9 ML QAM AND 5.9 ML QPM, 2X/DAY (BID)
     Dates: start: 20230606, end: 202306
  2. FINTEPLA [Suspect]
     Active Substance: FENFLURAMINE
     Dosage: 2.9 MILLILITER, 2X/DAY (BID)
     Dates: start: 202306, end: 202306
  3. FINTEPLA [Suspect]
     Active Substance: FENFLURAMINE
     Dosage: 1.4 MILLILITER, 2X/DAY (BID)
     Dates: start: 202306, end: 202306

REACTIONS (2)
  - Seizure [Not Recovered/Not Resolved]
  - Product use issue [Unknown]

NARRATIVE: CASE EVENT DATE: 20230606
